FAERS Safety Report 11205593 (Version 1)
Quarter: 2015Q2

REPORT INFORMATION
  Report Type: Spontaneous
  Country: IT (occurrence: IT)
  Receive Date: 20150622
  Receipt Date: 20150622
  Transmission Date: 20150821
  Serious: Yes (Hospitalization)
  Sender: FDA-Public Use
  Company Number: IT-NOVOPROD-452908

PATIENT
  Age: 89 Year
  Sex: Female

DRUGS (9)
  1. CACIT                              /00944201/ [Concomitant]
  2. NOVORAPID [Suspect]
     Active Substance: INSULIN ASPART
     Indication: DIABETES MELLITUS
     Dosage: 56 U, QD
     Route: 065
     Dates: start: 20140101
  3. CARDIOASPIRIN [Concomitant]
     Active Substance: ASPIRIN
  4. TORVAST [Concomitant]
     Active Substance: ATORVASTATIN
  5. LEVEMIR [Suspect]
     Active Substance: INSULIN DETEMIR
     Indication: DIABETES MELLITUS
     Dosage: 4 U, QD
     Route: 065
     Dates: start: 20140101, end: 20140901
  6. CIPRALEX [Concomitant]
     Active Substance: ESCITALOPRAM OXALATE
  7. NOVORAPID [Suspect]
     Active Substance: INSULIN ASPART
     Dosage: DOUBLE DOSAGE OF INSULIN (28U MORE)
     Route: 065
     Dates: start: 20140901, end: 20140901
  8. MINITRAN [Concomitant]
     Active Substance: NITROGLYCERIN
  9. CARDICOR [Concomitant]
     Active Substance: BISOPROLOL

REACTIONS (3)
  - Medication error [Unknown]
  - Sopor [Unknown]
  - Hypoglycaemia [Unknown]

NARRATIVE: CASE EVENT DATE: 20140901
